FAERS Safety Report 8424925 (Version 3)
Quarter: 2012Q4

REPORT INFORMATION
  Report Type: 
  Country: US (occurrence: US)
  Receive Date: 20120224
  Receipt Date: 20121203
  Transmission Date: 20130627
  Serious: Yes (Other)
  Sender: FDA-Public Use
  Company Number: US-PFIZER INC-2012046044

PATIENT
  Age: 47 Year
  Sex: Male
  Weight: 82.99 kg

DRUGS (8)
  1. LYRICA [Suspect]
     Indication: NEUROPATHY
     Dosage: 200 mg, 2x/day
     Route: 048
     Dates: start: 2007, end: 201112
  2. LYRICA [Suspect]
     Indication: BACK DISORDER
     Dosage: 225 mg, 2x/day
     Route: 048
  3. LORTAB [Concomitant]
     Indication: BACK DISORDER
     Dosage: 10/500 mg, UNK
  4. LORTAB [Concomitant]
     Indication: LEG DISCOMFORT
  5. FLEXERIL [Concomitant]
     Indication: BACK MUSCLE SPASMS
     Dosage: UNK
  6. CARVEDILOL [Concomitant]
     Indication: HYPERTENSION
     Dosage: 25 mg, UNK
  7. LISINOPRIL [Concomitant]
     Indication: HYPERTENSION
     Dosage: UNK
  8. HYDROCHLOROTHIAZIDE [Concomitant]
     Indication: HYPERTENSION
     Dosage: UNK

REACTIONS (1)
  - Hypertension [Unknown]
